FAERS Safety Report 10902324 (Version 1)
Quarter: 2015Q1

REPORT INFORMATION
  Report Type: Spontaneous
  Country: US (occurrence: US)
  Receive Date: 20150310
  Receipt Date: 20150310
  Transmission Date: 20150721
  Serious: Yes (Life-Threatening, Hospitalization, Other)
  Sender: FDA-Public Use
  Company Number: US-BAYER-2015-033206

PATIENT
  Age: 52 Year
  Sex: Male

DRUGS (1)
  1. ROMILAR [Suspect]
     Active Substance: DEXTROMETHORPHAN HYDROBROMIDE
     Dosage: 3 BOTTLES, ONCE
     Route: 048

REACTIONS (8)
  - Serotonin syndrome [Recovering/Resolving]
  - Overdose [None]
  - Hypotension [Recovering/Resolving]
  - Drug abuse [None]
  - Drug screen false positive [None]
  - Acute kidney injury [Recovering/Resolving]
  - Rhabdomyolysis [Recovering/Resolving]
  - Hypoxia [Recovering/Resolving]
